FAERS Safety Report 6440932-6 (Version None)
Quarter: 2009Q4

REPORT INFORMATION
  Report Type: 
  Country: None (occurrence: None)
  Receive Date: 20091116
  Receipt Date: 20091111
  Transmission Date: 20100525
  Serious: Yes (Other)
  Sender: FDA-Public Use
  Company Number: US-BRISTOL-MYERS SQUIBB COMPANY-14853774

PATIENT
  Age: 29 Year
  Sex: Male
  Weight: 128 kg

DRUGS (8)
  1. COUMADIN [Suspect]
     Dates: start: 20090101
  2. WARFARIN SODIUM [Suspect]
     Indication: PULMONARY EMBOLISM
     Dates: start: 20090601
  3. CRESTOR [Concomitant]
  4. AMBIEN [Concomitant]
  5. LOVAZA [Concomitant]
  6. BENADRYL [Concomitant]
  7. HEPARIN [Concomitant]
  8. RED YEAST RICE [Concomitant]

REACTIONS (3)
  - BLOOD CHOLESTEROL INCREASED [None]
  - BLOOD TRIGLYCERIDES INCREASED [None]
  - INTERNATIONAL NORMALISED RATIO DECREASED [None]
